FAERS Safety Report 18100410 (Version 2)
Quarter: 2021Q2

REPORT INFORMATION
  Report Type: Spontaneous
  Country: US (occurrence: US)
  Receive Date: 20200731
  Receipt Date: 20210629
  Transmission Date: 20210717
  Serious: Yes (Other)
  Sender: FDA-Public Use
  Company Number: US-TEVA-2020-US-1810121

PATIENT

DRUGS (2)
  1. BUSPIRONE HYDROCHLORIDE TEVA [Suspect]
     Active Substance: BUSPIRONE HYDROCHLORIDE
     Dosage: 15 MILLIGRAM DAILY;
     Route: 065
     Dates: start: 2020
  2. BUSPIRONE HYDROCHLORIDE TEVA [Suspect]
     Active Substance: BUSPIRONE HYDROCHLORIDE
     Dosage: 15 MILLIGRAM DAILY; START DATE: FOR ABOUT 2 YEARS
     Route: 065

REACTIONS (9)
  - Syncope [Recovered/Resolved]
  - Vertigo [Recovered/Resolved]
  - Feeling abnormal [Recovered/Resolved]
  - Product quality issue [Unknown]
  - Anxiety [Recovered/Resolved]
  - Monoplegia [Recovered/Resolved]
  - Feeling of despair [Recovered/Resolved]
  - Tunnel vision [Recovered/Resolved]
  - Psychiatric symptom [Recovered/Resolved]

NARRATIVE: CASE EVENT DATE: 2020
